FAERS Safety Report 24041855 (Version 1)
Quarter: 2024Q3

REPORT INFORMATION
  Report Type: Spontaneous
  Country: FR (occurrence: FR)
  Receive Date: 20240702
  Receipt Date: 20240702
  Transmission Date: 20241017
  Serious: Yes (Life-Threatening, Hospitalization)
  Sender: PURDUE
  Company Number: FR-PURDUE-USA-2024-0310543

PATIENT
  Age: 28 Year
  Sex: Female
  Weight: 66 kg

DRUGS (3)
  1. OXYCONTIN [Suspect]
     Active Substance: OXYCODONE HYDROCHLORIDE
     Indication: Fibromyalgia
     Dosage: 20 MILLIGRAM, DAILY
     Route: 048
     Dates: end: 20240319
  2. OXYCODONE HYDROCHLORIDE [Suspect]
     Active Substance: OXYCODONE HYDROCHLORIDE
     Indication: Fibromyalgia
     Dosage: 20 MILLIGRAM, DAILY
     Route: 048
     Dates: end: 20240319
  3. TRAMADOL HYDROCHLORIDE [Suspect]
     Active Substance: TRAMADOL HYDROCHLORIDE
     Indication: Fibromyalgia
     Dosage: 800 MILLIGRAM, DAILY
     Route: 048

REACTIONS (1)
  - Anaphylactic shock [Recovered/Resolved]
